FAERS Safety Report 7706958-7 (Version None)
Quarter: 2011Q3

REPORT INFORMATION
  Report Type: 
  Country: None (occurrence: None)
  Receive Date: 20110824
  Receipt Date: 20110819
  Transmission Date: 20111222
  Serious: No
  Sender: FDA-Public Use
  Company Number: US-PFIZER INC-2011192172

PATIENT
  Sex: Male
  Weight: 77.098 kg

DRUGS (7)
  1. LANTUS [Concomitant]
     Dosage: 100/ML
  2. SUTENT [Suspect]
     Dosage: 37.5 MG, 1X/DAY
     Route: 048
  3. ATENOLOL [Concomitant]
     Dosage: 25 MG, UNK
  4. SYNTHROID [Concomitant]
     Dosage: 100 UG, UNK
  5. HYDROCORT [Concomitant]
     Dosage: 0.5 %, UNK
  6. VITAMIN B-12 [Concomitant]
     Dosage: 1000 UG, UNK
  7. FISH OIL [Concomitant]
     Dosage: UNK

REACTIONS (1)
  - BLOOD PRESSURE INCREASED [None]
